FAERS Safety Report 23050286 (Version 1)
Quarter: 2023Q4

REPORT INFORMATION
  Report Type: Spontaneous
  Country: US (occurrence: US)
  Receive Date: 20231010
  Receipt Date: 20231010
  Transmission Date: 20240109
  Serious: No
  Sender: FDA-Public Use
  Company Number: US-SA-SAC20231003001294

PATIENT

DRUGS (2)
  1. LARONIDASE [Suspect]
     Active Substance: LARONIDASE
     Indication: Mucopolysaccharidosis I
     Dosage: 2.9 (UNITS NOT SPECIFIED), QW
     Route: 042
     Dates: start: 20230905, end: 2023
  2. LARONIDASE [Suspect]
     Active Substance: LARONIDASE
     Dosage: 2.9 (UNITS NOT SPECIFIED), QW
     Route: 042
     Dates: start: 2023

REACTIONS (2)
  - Urinary glycosaminoglycans increased [Not Recovered/Not Resolved]
  - Product dose omission issue [Not Recovered/Not Resolved]
